FAERS Safety Report 14434822 (Version 1)
Quarter: 2018Q1

REPORT INFORMATION
  Report Type: Spontaneous
  Country: DE (occurrence: DE)
  Receive Date: 20180125
  Receipt Date: 20180125
  Transmission Date: 20180509
  Serious: Yes (Hospitalization)
  Sender: FDA-Public Use
  Company Number: DE-AMGEN-DEUSP2018009358

PATIENT
  Age: 60 Year
  Sex: Female

DRUGS (22)
  1. METEX (METHOTREXATE SODIUM) [Concomitant]
     Active Substance: METHOTREXATE SODIUM
     Dosage: 15 MG, ON TUESDAYS
  2. METEX (METHOTREXATE SODIUM) [Concomitant]
     Active Substance: METHOTREXATE SODIUM
     Dosage: 10 MG, UNK
     Dates: start: 201712
  3. METOPROLOL. [Concomitant]
     Active Substance: METOPROLOL
     Dosage: 50 MG, IN THE EVENING
  4. RESTEX [Concomitant]
     Active Substance: BENSERAZIDE
     Dosage: NOON AND EVENING
  5. FOLIC ACID. [Concomitant]
     Active Substance: FOLIC ACID
     Dosage: WEDNESDAYS
  6. ATORVASTATIN [Concomitant]
     Active Substance: ATORVASTATIN
     Dosage: 20 MG, IN THE EVENING
  7. NOVALGIN (METAMIZOLE SODIUM) [Concomitant]
     Active Substance: METAMIZOLE SODIUM
     Dosage: 20 DROPS 4X/DAY
  8. TILIDIN [Concomitant]
     Active Substance: NALOXONE HYDROCHLORIDE\TILIDINE HYDROCHLORIDE
     Dosage: 50/4 MG IN THE MORNING AND IN THE EVENING
  9. FERRLECIT [Concomitant]
     Active Substance: SODIUM FERRIC GLUCONATE COMPLEX
     Indication: HYPERLIPIDAEMIA
     Dosage: 40 MG, THURSDAYS
  10. SPIRONOLACTON [Concomitant]
     Active Substance: SPIRONOLACTONE
     Dosage: WEDNESDAYS AND THURSDAYS
  11. EUTHYROX [Concomitant]
     Active Substance: LEVOTHYROXINE SODIUM
     Dosage: 100 AND 125 IN TURN DAILY
  12. VAGANTIN [Concomitant]
     Active Substance: METHANTHELINE BROMIDE
     Dosage: UNK UNK, 3X/DAY
  13. PANTOPRAZOLE [Concomitant]
     Active Substance: PANTOPRAZOLE
     Dosage: 20 MG IN THE MORNING
  14. DEKRISTOL [Concomitant]
     Active Substance: CHOLECALCIFEROL
     Dosage: 20000 IU, ONCE WEEKLY
  15. VEROSPIRON [Concomitant]
     Active Substance: SPIRONOLACTONE
     Dosage: IN THE MORNING BUT NOT ON DAYS WHEN APHARESIS IS DONE
  16. ENBREL [Suspect]
     Active Substance: ETANERCEPT
     Indication: PSORIATIC ARTHROPATHY
     Dosage: 50 MG, ONCE WEEKLY
     Route: 065
     Dates: start: 20150717
  17. CANDESARTAN. [Concomitant]
     Active Substance: CANDESARTAN
     Dosage: HALF TABLET IN THE EVENING
  18. CYMBALTA [Concomitant]
     Active Substance: DULOXETINE HYDROCHLORIDE
     Dosage: 30 MG, IN THE MORNING
  19. LODOTRA [Concomitant]
     Active Substance: PREDNISONE
     Dosage: 5 MG IN THE EVENING
  20. ASPIRIN. [Concomitant]
     Active Substance: ASPIRIN
     Dosage: 100 IN THE MORNING
  21. NITROLINGUAL [Concomitant]
     Active Substance: NITROGLYCERIN
     Dosage: UNK UNK, AS NEEDED
  22. VOLTAREN RESINAT [Concomitant]
     Active Substance: DICLOFENAC
     Dosage: AS NEEDED (2X1)

REACTIONS (1)
  - Inflammatory marker increased [Recovered/Resolved]

NARRATIVE: CASE EVENT DATE: 201712
